FAERS Safety Report 17392501 (Version 1)
Quarter: 2020Q1

REPORT INFORMATION
  Report Type: Report from Study
  Country: US (occurrence: US)
  Receive Date: 20200207
  Receipt Date: 20200207
  Transmission Date: 20200409
  Serious: Yes (Other)
  Sender: FDA-Public Use
  Company Number: US-ROCHE-2545449

PATIENT
  Sex: Female
  Weight: 47.67 kg

DRUGS (2)
  1. OCREVUS [Suspect]
     Active Substance: OCRELIZUMAB
     Indication: MULTIPLE SCLEROSIS
     Dosage: ONGOING : YES?DATE OF TREATMENT = 17/JAN/2018, 27/JUL/2018, 24/JAN/2019, 24/JUL/2019?DATE OF NEXT IN
     Route: 042
     Dates: start: 20171201
  2. OCREVUS [Suspect]
     Active Substance: OCRELIZUMAB
     Indication: RELAPSING MULTIPLE SCLEROSIS

REACTIONS (1)
  - Urinary tract infection [Recovering/Resolving]
